FAERS Safety Report 17219390 (Version 1)
Quarter: 2020Q1

REPORT INFORMATION
  Report Type: Spontaneous
  Country: US (occurrence: US)
  Receive Date: 20191230
  Receipt Date: 20191230
  Transmission Date: 20200409
  Serious: Yes (Disabling)
  Sender: FDA-Public Use
  Company Number: None

PATIENT
  Age: 59 Year
  Sex: Female
  Weight: 74.25 kg

DRUGS (8)
  1. TUMERIC [Concomitant]
     Active Substance: HERBALS\TURMERIC
  2. VITAMIN D3 [Concomitant]
     Active Substance: CHOLECALCIFEROL
  3. CIPROFLOXACIN. [Suspect]
     Active Substance: CIPROFLOXACIN
     Indication: DIVERTICULITIS
     Dosage: ?          QUANTITY:1 CAPSULE(S);?
     Route: 048
     Dates: start: 20190120, end: 20190130
  4. FLAGYL [Suspect]
     Active Substance: METRONIDAZOLE\METRONIDAZOLE HYDROCHLORIDE
     Indication: DIVERTICULITIS
     Dosage: ?          QUANTITY:1 CAPSULE(S);?
     Route: 048
     Dates: start: 20190120, end: 20190130
  5. VITAMIN E, B1, B12 [Concomitant]
  6. BIOTIN [Concomitant]
     Active Substance: BIOTIN
  7. MAGNESIUM [Concomitant]
     Active Substance: MAGNESIUM
  8. K2 [Concomitant]
     Active Substance: JWH-018

REACTIONS (19)
  - Drooling [None]
  - Anxiety [None]
  - Toxicity to various agents [None]
  - Fatigue [None]
  - Vision blurred [None]
  - Pain [None]
  - Depression [None]
  - Palpitations [None]
  - Emotional poverty [None]
  - Insomnia [None]
  - Feeling abnormal [None]
  - Nausea [None]
  - Pain in extremity [None]
  - Confusional state [None]
  - Vitreous floaters [None]
  - Arthralgia [None]
  - Mitochondrial toxicity [None]
  - Headache [None]
  - Rash [None]

NARRATIVE: CASE EVENT DATE: 20190120
